FAERS Safety Report 6710103-4 (Version None)
Quarter: 2010Q2

REPORT INFORMATION
  Report Type: 
  Country: None (occurrence: None)
  Receive Date: 20100504
  Receipt Date: 20100423
  Transmission Date: 20101027
  Serious: No
  Sender: FDA-Public Use
  Company Number: CO-PFIZER INC-2010046582

PATIENT
  Age: 59 Year
  Sex: Male

DRUGS (1)
  1. LOPID [Suspect]
     Indication: BLOOD TRIGLYCERIDES INCREASED
     Dosage: 900 MG, 1X/DAY
     Route: 048
     Dates: start: 20100301

REACTIONS (2)
  - PHOTOPSIA [None]
  - VISUAL IMPAIRMENT [None]
